FAERS Safety Report 7110146-5 (Version None)
Quarter: 2010Q4

REPORT INFORMATION
  Report Type: 
  Country: None (occurrence: None)
  Receive Date: 20101112
  Receipt Date: 20101027
  Transmission Date: 20110411
  Serious: Yes (Hospitalization)
  Sender: FDA-Public Use
  Company Number: 1-17292150

PATIENT
  Age: 68 Year
  Sex: Female
  Weight: 56.6996 kg

DRUGS (17)
  1. QUININE SULFATE [Suspect]
     Indication: MUSCLE SPASMS
     Dosage: ORAL
     Route: 048
     Dates: start: 20040409
  2. HYDROCHLOROTHIAZIDE [Concomitant]
  3. IBUPROFEN [Concomitant]
  4. NIACIN [Concomitant]
  5. WELLBUTRIN [Concomitant]
  6. FLOVENT HFA [Concomitant]
  7. OMEPRAZOLE [Concomitant]
  8. MIRAPEX [Concomitant]
  9. BYSTOLIC [Concomitant]
  10. LISINOPRIL [Concomitant]
  11. DAILY VITAMIN [Concomitant]
  12. CALCIUM [Concomitant]
  13. MAGNESIUM [Concomitant]
  14. ZINC [Concomitant]
  15. VITAMIN D [Concomitant]
  16. VITAMIN E [Concomitant]
  17. ADVAIR [Concomitant]

REACTIONS (18)
  - ANXIETY [None]
  - ARTHRITIS [None]
  - BLOOD BLISTER [None]
  - DIZZINESS [None]
  - DRUG HYPERSENSITIVITY [None]
  - EMOTIONAL DISTRESS [None]
  - FEAR [None]
  - GASTROOESOPHAGEAL REFLUX DISEASE [None]
  - GRIEF REACTION [None]
  - HEADACHE [None]
  - HYPERTENSION [None]
  - MENTAL DISORDER [None]
  - NERVOUSNESS [None]
  - PAIN [None]
  - RESTLESS LEGS SYNDROME [None]
  - SHOCK [None]
  - THROMBOCYTOPENIA [None]
  - VOMITING [None]
